FAERS Safety Report 7319724-1 (Version None)
Quarter: 2011Q1

REPORT INFORMATION
  Report Type: 
  Country: None (occurrence: None)
  Receive Date: 20110228
  Receipt Date: 20100825
  Transmission Date: 20110831
  Serious: No
  Sender: FDA-Public Use
  Company Number: A0877674A

PATIENT
  Age: 27 Year
  Sex: Female

DRUGS (6)
  1. LEXAPRO [Concomitant]
  2. NEXIUM [Concomitant]
  3. LAMICTAL [Suspect]
     Indication: DEPRESSION
     Dosage: 200MG PER DAY
     Route: 048
     Dates: start: 20100101
  4. METHADONE [Concomitant]
  5. CYMBALTA [Concomitant]
  6. COLACE [Concomitant]

REACTIONS (3)
  - RASH ERYTHEMATOUS [None]
  - OEDEMA PERIPHERAL [None]
  - JOINT SWELLING [None]
